FAERS Safety Report 5919042-X (Version None)
Quarter: 2008Q4

REPORT INFORMATION
  Report Type: 
  Country: None (occurrence: None)
  Receive Date: 20081014
  Receipt Date: 20081014
  Transmission Date: 20090506
  Serious: Yes (Other)
  Sender: FDA-Public Use
  Company Number: None

PATIENT
  Age: 7 Year
  Sex: Female
  Weight: 23.587 kg

DRUGS (1)
  1. CIPRO [Suspect]
     Indication: EAR INFECTION
     Dosage: 3 DROPS 2X DAY OTIC
     Route: 001
     Dates: start: 20081011, end: 20081011

REACTIONS (6)
  - EYE PRURITUS [None]
  - LETHARGY [None]
  - ORAL PRURITUS [None]
  - PYREXIA [None]
  - THROAT IRRITATION [None]
  - URTICARIA [None]
